FAERS Safety Report 4894796-2 (Version None)
Quarter: 2006Q1

REPORT INFORMATION
  Report Type: 
  Country: None (occurrence: None)
  Receive Date: 20060126
  Receipt Date: 20060126
  Transmission Date: 20060701
  Serious: Yes (Life-Threatening)
  Sender: FDA-Public Use
  Company Number: None

PATIENT
  Age: 52 Year
  Sex: Male
  Weight: 86.1834 kg

DRUGS (3)
  1. WELLBUTRIN XL [Suspect]
     Indication: ANXIETY
     Dosage: 150MG   1X DAILY  PO
     Route: 048
     Dates: start: 20051115, end: 20051221
  2. WELLBUTRIN XL [Suspect]
     Indication: DEPRESSION
     Dosage: 150MG   1X DAILY  PO
     Route: 048
     Dates: start: 20051115, end: 20051221
  3. CELEXA [Concomitant]

REACTIONS (1)
  - CONVULSION [None]
